FAERS Safety Report 6231955-0 (Version None)
Quarter: 2009Q2

REPORT INFORMATION
  Report Type: 
  Country: None (occurrence: None)
  Receive Date: 20090616
  Receipt Date: 20090210
  Transmission Date: 20091009
  Serious: No
  Sender: FDA-Public Use
  Company Number: US-ABBOTT-09P-163-0502965-00

PATIENT
  Age: 10 Year
  Sex: Female
  Weight: 46.308 kg

DRUGS (1)
  1. GENGRAF [Suspect]
     Indication: FOCAL SEGMENTAL GLOMERULOSCLEROSIS
     Dates: start: 20070101

REACTIONS (3)
  - AMNESIA [None]
  - CONFUSIONAL STATE [None]
  - EMOTIONAL DISORDER OF CHILDHOOD [None]
